FAERS Safety Report 21683114 (Version 1)
Quarter: 2022Q4

REPORT INFORMATION
  Report Type: Spontaneous
  Country: US (occurrence: US)
  Receive Date: 20221205
  Receipt Date: 20221205
  Transmission Date: 20230113
  Serious: No
  Sender: FDA-Public Use
  Company Number: US-JNJFOC-20221165551

PATIENT
  Age: 72 Year
  Sex: Male

DRUGS (1)
  1. IMODIUM A-D [Suspect]
     Active Substance: LOPERAMIDE HYDROCHLORIDE
     Indication: Diarrhoea
     Dosage: AT 11:15 AM
     Route: 048
     Dates: start: 20221127

REACTIONS (1)
  - Infrequent bowel movements [Unknown]

NARRATIVE: CASE EVENT DATE: 20221101
